FAERS Safety Report 11965320 (Version 1)
Quarter: 2016Q1

REPORT INFORMATION
  Report Type: Spontaneous
  Country: US (occurrence: None)
  Receive Date: 20160125
  Receipt Date: 20160125
  Transmission Date: 20160526
  Serious: Yes (Other)
  Sender: FDA-Public Use
  Company Number: None

PATIENT
  Age: 46 Year
  Sex: Female
  Weight: 74.84 kg

DRUGS (3)
  1. PATELLA TENDON SUPPORT BRACE [Concomitant]
  2. LEVAQUIN [Suspect]
     Active Substance: LEVOFLOXACIN
     Indication: SINUSITIS
     Route: 048
     Dates: start: 20140127, end: 20140203
  3. MULTIVITAMIN [Concomitant]
     Active Substance: VITAMINS

REACTIONS (5)
  - Hypoaesthesia [None]
  - Blood glucose increased [None]
  - Paraesthesia [None]
  - Tendonitis [None]
  - Depression [None]

NARRATIVE: CASE EVENT DATE: 20140205
